FAERS Safety Report 5711668-1 (Version None)
Quarter: 2008Q2

REPORT INFORMATION
  Report Type: 
  Country: None (occurrence: None)
  Receive Date: 20080421
  Receipt Date: 20080410
  Transmission Date: 20081010
  Serious: Yes (Hospitalization, Other)
  Sender: FDA-Public Use
  Company Number: BR-PFIZER INC-2007042029

PATIENT
  Sex: Female
  Weight: 115 kg

DRUGS (4)
  1. FELDENE [Suspect]
     Indication: POSTOPERATIVE CARE
  2. SYNTHROID [Concomitant]
     Indication: AUTOIMMUNE THYROIDITIS
     Route: 048
  3. LOSARTAN POTASSIUM [Concomitant]
     Indication: HYPERTENSION
     Route: 048
  4. HYDROCHLOROTHIAZIDE [Concomitant]
     Indication: HYPERTENSION
     Route: 048

REACTIONS (4)
  - FALL [None]
  - FIBROMYALGIA [None]
  - LIGAMENT INJURY [None]
  - WEIGHT DECREASED [None]
